FAERS Safety Report 24330730 (Version 6)
Quarter: 2025Q3

REPORT INFORMATION
  Report Type: Report from Study
  Country: EU (occurrence: EU)
  Receive Date: 20240918
  Receipt Date: 20250716
  Transmission Date: 20251020
  Serious: Yes (Other)
  Sender: AUROBINDO
  Company Number: EU-ZENTIVA-2024-ZT-012720

PATIENT
  Age: 24 Year
  Sex: Female

DRUGS (5)
  1. DEFERASIROX [Suspect]
     Active Substance: DEFERASIROX
     Indication: Thalassaemia beta
     Dosage: 24 MILLIGRAM/KILOGRAM, ONCE A DAY
     Route: 065
  2. MESALAMINE [Suspect]
     Active Substance: MESALAMINE
     Indication: Thalassaemia beta
     Route: 065
  3. ALENDRONATE [Concomitant]
     Active Substance: ALENDRONATE SODIUM
     Indication: Thalassaemia beta
     Route: 065
  4. DROSPIRENONE\ETHINYL ESTRADIOL [Concomitant]
     Active Substance: DROSPIRENONE\ETHINYL ESTRADIOL
     Indication: Thalassaemia beta
     Route: 065
  5. CHOLECALCIFEROL [Concomitant]
     Active Substance: CHOLECALCIFEROL
     Indication: Thalassaemia beta
     Route: 065

REACTIONS (8)
  - Haematochezia [Recovered/Resolved]
  - Hepatotoxicity [Recovered/Resolved]
  - Colitis ulcerative [Recovered/Resolved]
  - Colitis erosive [Recovered/Resolved]
  - Abdominal pain [Recovered/Resolved]
  - Faecal calprotectin increased [Recovered/Resolved]
  - Diarrhoea [Recovered/Resolved]
  - Drug ineffective [Unknown]
